FAERS Safety Report 18567621 (Version 1)
Quarter: 2020Q4

REPORT INFORMATION
  Report Type: Spontaneous
  Country: US (occurrence: US)
  Receive Date: 20201202
  Receipt Date: 20201202
  Transmission Date: 20210114
  Serious: Yes (Other)
  Sender: FDA-Public Use
  Company Number: US-CIPLA LTD.-2020US08997

PATIENT

DRUGS (9)
  1. AMIODARONE [Suspect]
     Active Substance: AMIODARONE
     Dosage: 600 MILLIGRAM, TID
     Route: 048
  2. DIGOXIN. [Suspect]
     Active Substance: DIGOXIN
     Dosage: 64 MICROGRAMS
     Route: 065
  3. FLECAINIDE [Suspect]
     Active Substance: FLECAINIDE
     Indication: TACHYCARDIA FOETAL
     Dosage: 150 MILLIGRAM, BID
     Route: 048
  4. AMIODARONE [Suspect]
     Active Substance: AMIODARONE
     Dosage: 800 MILLIGRAM DAILY
     Route: 048
  5. DIGOXIN. [Suspect]
     Active Substance: DIGOXIN
     Dosage: 250 MICROGRAM, BID
     Route: 048
  6. METOPROLOL. [Suspect]
     Active Substance: METOPROLOL
     Indication: TACHYCARDIA FOETAL
     Dosage: 100 MILLIGRAM DAILY
     Route: 048
  7. SOTALOL. [Suspect]
     Active Substance: SOTALOL
     Indication: TACHYCARDIA FOETAL
     Dosage: 160 MILLIGRAM, BID
     Route: 048
  8. AMIODARONE [Suspect]
     Active Substance: AMIODARONE
     Indication: TACHYCARDIA FOETAL
     Dosage: 5 MILLIGRAM, SINGLE
     Route: 065
  9. DIGOXIN. [Suspect]
     Active Substance: DIGOXIN
     Indication: TACHYCARDIA FOETAL
     Dosage: 500 MICROGRAM, LOADING DOSES
     Route: 048

REACTIONS (2)
  - Premature delivery [Unknown]
  - Exposure during pregnancy [Unknown]
